FAERS Safety Report 7133469-2 (Version None)
Quarter: 2010Q4

REPORT INFORMATION
  Report Type: 
  Country: None (occurrence: None)
  Receive Date: 20101202
  Receipt Date: 20101019
  Transmission Date: 20110411
  Serious: Yes (Death, Other)
  Sender: FDA-Public Use
  Company Number: US-BAXTER-2008BH003078

PATIENT
  Age: 53 Year
  Sex: Female
  Weight: 66 kg

DRUGS (27)
  1. HEPARIN SODIUM INJECTION [Suspect]
     Indication: THROMBOSIS PROPHYLAXIS
     Route: 042
     Dates: start: 20070709, end: 20071130
  2. HEPARIN SODIUM INJECTION [Suspect]
     Route: 042
     Dates: start: 20070821, end: 20071130
  3. HEPARIN SODIUM INJECTION [Suspect]
     Route: 042
     Dates: start: 20070821, end: 20071130
  4. HEPARIN SODIUM INJECTION [Suspect]
     Route: 042
     Dates: start: 20070821, end: 20071130
  5. HEPARIN SODIUM INJECTION [Suspect]
     Route: 042
     Dates: start: 20070821, end: 20071130
  6. HEPARIN SODIUM INJECTION [Suspect]
     Route: 042
     Dates: start: 20070821, end: 20071130
  7. HEPARIN SODIUM INJECTION [Suspect]
     Route: 042
     Dates: start: 20070821, end: 20071130
  8. ALLOPURINOL [Concomitant]
     Indication: GOUT
     Route: 048
  9. ALPRAZOLAM [Concomitant]
     Indication: PRODUCT USED FOR UNKNOWN INDICATION
     Route: 048
  10. PHOSLO [Concomitant]
     Indication: ELECTROLYTE IMBALANCE
     Route: 048
  11. ASCORBIC ACID [Concomitant]
     Indication: PRODUCT USED FOR UNKNOWN INDICATION
     Route: 065
  12. ARANESP [Concomitant]
     Indication: PRODUCT USED FOR UNKNOWN INDICATION
     Route: 065
  13. PREDNISONE [Concomitant]
     Indication: PRODUCT USED FOR UNKNOWN INDICATION
     Route: 065
  14. PANTOPRAZOLE SODIUM [Concomitant]
     Indication: PRODUCT USED FOR UNKNOWN INDICATION
     Route: 065
  15. AMBIEN [Concomitant]
     Indication: PRODUCT USED FOR UNKNOWN INDICATION
     Route: 065
  16. AMLODIPINE [Concomitant]
     Indication: BLOOD PRESSURE
     Route: 048
  17. CELEXA [Concomitant]
     Indication: DEPRESSION
     Route: 048
  18. ZETIA [Concomitant]
     Indication: BLOOD CHOLESTEROL
     Route: 048
  19. LORAZEPAM [Concomitant]
     Indication: ANXIETY
     Route: 048
  20. METOPROLOL SUCCINATE [Concomitant]
     Indication: BLOOD PRESSURE
     Route: 048
  21. PRAVASTATIN SODIUM [Concomitant]
     Indication: BLOOD CHOLESTEROL
     Route: 048
  22. FENTANYL [Concomitant]
     Indication: PRODUCT USED FOR UNKNOWN INDICATION
     Route: 065
  23. MIDAZOLAM [Concomitant]
     Indication: PRODUCT USED FOR UNKNOWN INDICATION
     Route: 065
  24. SORBITOL [Concomitant]
     Indication: PRODUCT USED FOR UNKNOWN INDICATION
     Route: 065
  25. NEPHROCAPS [Concomitant]
     Indication: PRODUCT USED FOR UNKNOWN INDICATION
     Route: 065
  26. ACETAMINOPHEN W/ CODEINE [Concomitant]
     Indication: PRODUCT USED FOR UNKNOWN INDICATION
     Route: 065
  27. MULTI-VITAMINS [Concomitant]
     Indication: PRODUCT USED FOR UNKNOWN INDICATION
     Route: 065

REACTIONS (27)
  - AIR EMBOLISM [None]
  - ANAEMIA [None]
  - ARRHYTHMIA [None]
  - ARTHRALGIA [None]
  - BLOOD PHOSPHORUS DECREASED [None]
  - CARDIO-RESPIRATORY ARREST [None]
  - CHILLS [None]
  - CONTUSION [None]
  - DEPRESSED LEVEL OF CONSCIOUSNESS [None]
  - DIARRHOEA [None]
  - DIZZINESS [None]
  - FALL [None]
  - FATIGUE [None]
  - HAEMORRHAGE [None]
  - HYPERSENSITIVITY [None]
  - HYPOTENSION [None]
  - LIP SWELLING [None]
  - MEDICAL DEVICE COMPLICATION [None]
  - MEMORY IMPAIRMENT [None]
  - MUSCULAR WEAKNESS [None]
  - NAUSEA [None]
  - PAIN [None]
  - RESPIRATORY FAILURE [None]
  - SWOLLEN TONGUE [None]
  - TACHYCARDIA [None]
  - UNRESPONSIVE TO STIMULI [None]
  - VOMITING [None]
